FAERS Safety Report 8920138 (Version 2)
Quarter: 2015Q1

REPORT INFORMATION
  Report Type: Report from Study
  Country: US (occurrence: US)
  Receive Date: 20121122
  Receipt Date: 20150319
  Transmission Date: 20150721
  Serious: Yes (Death)
  Sender: FDA-Public Use
  Company Number: US-ROCHE-1158967

PATIENT
  Sex: Male

DRUGS (7)
  1. PROCRIT [Concomitant]
     Active Substance: ERYTHROPOIETIN
     Indication: COLON CANCER
     Dosage: 40000 U
     Route: 058
  2. AVASTIN [Suspect]
     Active Substance: BEVACIZUMAB
     Indication: COLON CANCER
     Route: 042
  3. CISPLATIN. [Concomitant]
     Active Substance: CISPLATIN
  4. OXALIPLATIN. [Concomitant]
     Active Substance: OXALIPLATIN
  5. HEPARIN [Concomitant]
     Active Substance: HEPARIN SODIUM
  6. VICODIN [Concomitant]
     Active Substance: ACETAMINOPHEN\HYDROCODONE BITARTRATE
  7. XELODA [Suspect]
     Active Substance: CAPECITABINE
     Indication: COLON CANCER
     Dosage: 14 DAYS ON AND 7 DAYS OFF
     Route: 048

REACTIONS (1)
  - Death [Fatal]
